FAERS Safety Report 5836385-9 (Version None)
Quarter: 2008Q3

REPORT INFORMATION
  Report Type: 
  Country: None (occurrence: None)
  Receive Date: 20080807
  Receipt Date: 20080528
  Transmission Date: 20090109
  Serious: No
  Sender: FDA-Public Use
  Company Number: US-BAYER-200824356NA

PATIENT
  Sex: Female

DRUGS (3)
  1. PRECOSE [Suspect]
     Indication: GLUCOSE TOLERANCE IMPAIRED
     Dosage: TOTAL DAILY DOSE: 75 MG  UNIT DOSE: 25 MG
     Route: 048
     Dates: start: 20080521
  2. PRECOSE [Suspect]
     Dosage: TOTAL DAILY DOSE: 150 MG  UNIT DOSE: 50 MG
     Route: 048
     Dates: start: 20080301, end: 20080501
  3. THYROID HORMONES [Concomitant]
     Indication: AUTOIMMUNE THYROIDITIS

REACTIONS (7)
  - ABDOMINAL DISTENSION [None]
  - DIARRHOEA [None]
  - DYSPEPSIA [None]
  - ENERGY INCREASED [None]
  - FLATULENCE [None]
  - LOCAL SWELLING [None]
  - POOR QUALITY SLEEP [None]
